FAERS Safety Report 7327805-1 (Version None)
Quarter: 2011Q1

REPORT INFORMATION
  Report Type: 
  Country: None (occurrence: None)
  Receive Date: 20110224
  Receipt Date: 20110224
  Transmission Date: 20110831
  Serious: No
  Sender: FDA-Public Use
  Company Number: None

PATIENT
  Age: 77 Year
  Sex: Female

DRUGS (1)
  1. NITROFURANTOIN [Suspect]
     Dates: start: 20100115, end: 20100217

REACTIONS (3)
  - COAGULOPATHY [None]
  - HEPATOCELLULAR INJURY [None]
  - HEPATIC ENCEPHALOPATHY [None]
